FAERS Safety Report 10235332 (Version 1)
Quarter: 2014Q2

REPORT INFORMATION
  Report Type: Report from Study
  Country: IT (occurrence: None)
  Receive Date: 20140611
  Receipt Date: 20140611
  Transmission Date: 20141212
  Serious: Yes (Death, Hospitalization, Other)
  Sender: FDA-Public Use
  Company Number: IT-2013-2139

PATIENT
  Age: 76 Year
  Sex: Female

DRUGS (2)
  1. NAVELBINE (VINORELBINE TARTRATE) CAPSULE (SOFT) [Suspect]
     Indication: BREAST CANCER
     Dosage: (1/2 DAYS)
     Route: 048
     Dates: start: 20130318, end: 20130330
  2. CAPECITABINE (CAPECITABINE, CAPECITABINE) [Suspect]
     Indication: BREAST CANCER
     Dosage: (3/DAY)
     Route: 048
     Dates: start: 20130318, end: 20130330

REACTIONS (3)
  - C-reactive protein increased [None]
  - Neutropenia [None]
  - Leukopenia [None]
